FAERS Safety Report 9701147 (Version 1)
Quarter: 2013Q4

REPORT INFORMATION
  Report Type: Spontaneous
  Country: US (occurrence: None)
  Receive Date: 20131119
  Receipt Date: 20131119
  Transmission Date: 20140711
  Serious: Yes (Other)
  Sender: FDA-Public Use
  Company Number: AUR-APL-2013-09448

PATIENT
  Age: 68 Year
  Sex: Male

DRUGS (1)
  1. GABAPENTIN [Suspect]
     Indication: HYPOAESTHESIA

REACTIONS (6)
  - Normochromic normocytic anaemia [None]
  - Blood creatinine increased [None]
  - Myoclonus [None]
  - Asterixis [None]
  - Hyperexplexia [None]
  - Post-anoxic myoclonus [None]
